FAERS Safety Report 20906796 (Version 3)
Quarter: 2022Q3

REPORT INFORMATION
  Report Type: Spontaneous
  Country: JP (occurrence: JP)
  Receive Date: 20220602
  Receipt Date: 20220726
  Transmission Date: 20221026
  Serious: Yes (Other)
  Sender: FDA-Public Use
  Company Number: JP-NOVARTISPH-NVSJ2022JP005647

PATIENT
  Sex: Female
  Weight: 48 kg

DRUGS (11)
  1. NEORAL [Suspect]
     Active Substance: CYCLOSPORINE
     Indication: Dermatitis atopic
     Dosage: 150 MG, QD (3 CAP)
     Route: 048
     Dates: start: 20180509
  2. NEORAL [Suspect]
     Active Substance: CYCLOSPORINE
     Dosage: 100 MG, QD (2 CAP)
     Route: 048
     Dates: start: 20180711
  3. NEORAL [Suspect]
     Active Substance: CYCLOSPORINE
     Dosage: 150 MG, QD (3 CAP)
     Route: 048
     Dates: start: 20200108
  4. NEORAL [Suspect]
     Active Substance: CYCLOSPORINE
     Dosage: 100 MG, QD (2 CAP)
     Route: 048
     Dates: end: 20201201
  5. NEORAL [Suspect]
     Active Substance: CYCLOSPORINE
     Dosage: 150 MG, QD (3 CAP)
     Route: 048
     Dates: start: 20210728
  6. NEORAL [Suspect]
     Active Substance: CYCLOSPORINE
     Dosage: 100 MG, QD (2 CAP)
     Route: 048
     Dates: start: 20210827
  7. NEORAL [Suspect]
     Active Substance: CYCLOSPORINE
     Dosage: 50 MG, QD (1 CAP)
     Route: 048
     Dates: start: 20211207
  8. NEORAL [Suspect]
     Active Substance: CYCLOSPORINE
     Dosage: 25 MG, QD (1 CAP)
     Route: 048
     Dates: start: 20211220, end: 20220330
  9. ALLELOCK [Concomitant]
     Active Substance: OLOPATADINE HYDROCHLORIDE
     Indication: Pruritus
     Dosage: 1 DOSAGE FORM, BID
     Route: 048
     Dates: start: 20210531, end: 20220330
  10. CINAL [Concomitant]
     Indication: Pigmentation disorder
     Dosage: 1 DOSAGE FORM, TID
     Route: 048
     Dates: start: 20210531
  11. TRANSAMIN [Concomitant]
     Active Substance: TRANEXAMIC ACID
     Indication: Pigmentation disorder
     Dosage: 1 DOSAGE FORM, TID
     Route: 048
     Dates: start: 20210531

REACTIONS (1)
  - Ovarian cancer [Recovering/Resolving]
